FAERS Safety Report 9761094 (Version 1)
Quarter: 2013Q4

REPORT INFORMATION
  Report Type: Spontaneous
  Country: US (occurrence: US)
  Receive Date: 20131216
  Receipt Date: 20131216
  Transmission Date: 20140711
  Serious: No
  Sender: FDA-Public Use
  Company Number: US-BIOGENIDEC-2013BI104899

PATIENT
  Age: 37 Year
  Sex: Female

DRUGS (8)
  1. TECFIDERA [Suspect]
     Indication: PRODUCT USED FOR UNKNOWN INDICATION
     Route: 048
  2. OXCARBAZEPIN [Concomitant]
  3. PROAIR HFA [Concomitant]
  4. GABAPENTIN [Concomitant]
  5. CYMBALTA [Concomitant]
  6. TRAZADONE [Concomitant]
  7. IBUPROFEN [Concomitant]
  8. ALEVE [Concomitant]

REACTIONS (1)
  - Flushing [Unknown]
